FAERS Safety Report 6965168-1 (Version None)
Quarter: 2010Q3

REPORT INFORMATION
  Report Type: 
  Country: None (occurrence: None)
  Receive Date: 20100903
  Receipt Date: 20100824
  Transmission Date: 20110219
  Serious: Yes (Hospitalization)
  Sender: FDA-Public Use
  Company Number: JP-PFIZER INC-2010094428

PATIENT
  Age: 52 Year
  Sex: Male
  Weight: 67.2 kg

DRUGS (4)
  1. SUNITINIB MALATE [Suspect]
     Indication: GASTRIC CANCER
     Dosage: 25 MG, 1X/DAY, 2/2 SCHEDULE
     Route: 048
     Dates: start: 20100107, end: 20100713
  2. CISPLATIN [Suspect]
     Indication: GASTRIC CANCER
     Dosage: 108.6 MG, EVERY 4 WEEKS
     Route: 042
     Dates: start: 20100108, end: 20100630
  3. *TS-1 [Suspect]
     Indication: GASTRIC CANCER
     Dosage: 120 MG, 1X/DAY, 3/1 CYCLE
     Route: 048
     Dates: start: 20100108, end: 20100718
  4. TAKEPRON [Concomitant]
     Indication: GASTRIC CANCER
     Dosage: 15 MG, UNK
     Route: 048
     Dates: start: 20100112, end: 20100727

REACTIONS (1)
  - GASTROINTESTINAL HAEMORRHAGE [None]
